FAERS Safety Report 11881564 (Version 1)
Quarter: 2015Q4

REPORT INFORMATION
  Report Type: Report from Study
  Country: US (occurrence: US)
  Receive Date: 20151231
  Receipt Date: 20151231
  Transmission Date: 20160305
  Serious: No
  Sender: FDA-Public Use
  Company Number: US-AMGEN-USASL2015136921

PATIENT
  Age: 45 Year
  Sex: Female

DRUGS (1)
  1. ENBREL [Suspect]
     Active Substance: ETANERCEPT
     Indication: RHEUMATOID ARTHRITIS
     Dosage: UNK
     Route: 065
     Dates: start: 201507

REACTIONS (5)
  - Lip pain [Unknown]
  - Rash [Unknown]
  - Irritable bowel syndrome [Unknown]
  - Cheilitis [Unknown]
  - Stress [Unknown]

NARRATIVE: CASE EVENT DATE: 2015
